FAERS Safety Report 8759087 (Version 3)
Quarter: 2012Q4

REPORT INFORMATION
  Report Type: 
  Country: US (occurrence: US)
  Receive Date: 20120829
  Receipt Date: 20120928
  Transmission Date: 20130627
  Serious: No
  Sender: FDA-Public Use
  Company Number: US-009507513-1208USA005881

PATIENT
  Age: 22 Year
  Sex: Female

DRUGS (2)
  1. IMPLANON [Suspect]
     Indication: CONTRACEPTION
     Dosage: 1 rod every 3 years
     Route: 059
     Dates: start: 20090729
  2. IMPLANON [Suspect]
     Dosage: UNK
     Dates: start: 20120809

REACTIONS (5)
  - Weight increased [Unknown]
  - Medical device complication [Unknown]
  - Complication of device removal [Unknown]
  - Medical device complication [Unknown]
  - Incorrect drug administration duration [Unknown]
